FAERS Safety Report 5651959-6 (Version None)
Quarter: 2008Q1

REPORT INFORMATION
  Report Type: 
  Country: None (occurrence: None)
  Receive Date: 20080304
  Receipt Date: 20080220
  Transmission Date: 20080703
  Serious: Yes (Hospitalization)
  Sender: FDA-Public Use
  Company Number: 2006BI017282

PATIENT
  Age: 34 Year
  Sex: Male
  Weight: 63.5036 kg

DRUGS (1)
  1. AVONEX [Suspect]
     Indication: MULTIPLE SCLEROSIS
     Dosage: 30 UG;QW;IM
     Route: 030
     Dates: start: 20060914, end: 20061005

REACTIONS (5)
  - ACNE [None]
  - COLITIS ULCERATIVE [None]
  - LARGE INTESTINAL ULCER HAEMORRHAGE [None]
  - LARGE INTESTINE PERFORATION [None]
  - SEPSIS [None]
